FAERS Safety Report 9479031 (Version 3)
Quarter: 2013Q3

REPORT INFORMATION
  Report Type: Spontaneous
  Country: US (occurrence: US)
  Receive Date: 20130827
  Receipt Date: 20130925
  Transmission Date: 20140515
  Serious: Yes (Other)
  Sender: FDA-Public Use
  Company Number: US-BAYER-2013-103164

PATIENT
  Age: 23 Year
  Sex: Female
  Weight: 69 kg

DRUGS (2)
  1. ALEVE TABLET [Suspect]
     Indication: DYSMENORRHOEA
     Dosage: 14 DF, UNK
     Route: 048
     Dates: end: 20130825
  2. ALEVE TABLET [Suspect]
     Indication: DYSMENORRHOEA

REACTIONS (4)
  - Overdose [None]
  - Hepatomegaly [Not Recovered/Not Resolved]
  - Abdominal pain [Recovered/Resolved]
  - Dyspnoea [Recovered/Resolved]
